FAERS Safety Report 6655016-1 (Version None)
Quarter: 2010Q1

REPORT INFORMATION
  Report Type: 
  Country: None (occurrence: None)
  Receive Date: 20100329
  Receipt Date: 20100317
  Transmission Date: 20100710
  Serious: Yes (Hospitalization)
  Sender: FDA-Public Use
  Company Number: US-WYE-H14163610

PATIENT
  Age: 74 Year
  Sex: Female

DRUGS (2)
  1. TEMSIROLIMUS [Suspect]
     Indication: RENAL CELL CARCINOMA
     Dosage: 25MG OVER 30MIN DAYS 1,8,15,AND 22 OF CYCLE
     Route: 042
     Dates: start: 20090918, end: 20100113
  2. BEVACIZUMAB [Suspect]
     Indication: RENAL CELL CARCINOMA
     Dosage: 10MG/KG OVER 30-90 MIN DAYS 1 AND 15
     Route: 042
     Dates: start: 20090918, end: 20091230

REACTIONS (1)
  - PERINEAL FISTULA [None]
